FAERS Safety Report 11825031 (Version 4)
Quarter: 2016Q1

REPORT INFORMATION
  Report Type: Report from Study
  Country: US (occurrence: US)
  Receive Date: 20151211
  Receipt Date: 20160118
  Transmission Date: 20160525
  Serious: No
  Sender: FDA-Public Use
  Company Number: US-AMGEN-USASP2015129103

PATIENT
  Age: 73 Year
  Sex: Female

DRUGS (2)
  1. ENBREL [Suspect]
     Active Substance: ETANERCEPT
     Indication: RHEUMATOID ARTHRITIS
     Dosage: 25 MG, 2 TIMES/WK
     Route: 065
     Dates: start: 201511
  2. ENBREL [Suspect]
     Active Substance: ETANERCEPT
     Indication: PSORIATIC ARTHROPATHY

REACTIONS (8)
  - Injection site haemorrhage [Unknown]
  - Oropharyngeal pain [Unknown]
  - Drug dose omission [Unknown]
  - Hypoacusis [Unknown]
  - Paranasal sinus discomfort [Unknown]
  - Product use issue [Unknown]
  - Injection site pain [Unknown]
  - Sinus disorder [Unknown]

NARRATIVE: CASE EVENT DATE: 2015
